FAERS Safety Report 19979597 (Version 1)
Quarter: 2021Q4

REPORT INFORMATION
  Report Type: Spontaneous
  Country: US (occurrence: US)
  Receive Date: 20211021
  Receipt Date: 20211021
  Transmission Date: 20220303
  Serious: No
  Sender: FDA-Public Use
  Company Number: US-GLAXOSMITHKLINE-US2021AMR217738

PATIENT
  Sex: Female

DRUGS (1)
  1. WELLBUTRIN XL [Suspect]
     Active Substance: BUPROPION HYDROCHLORIDE
     Indication: Major depression
     Dosage: 150 MG, 1D
     Route: 048
     Dates: start: 202110

REACTIONS (2)
  - Paradoxical drug reaction [Unknown]
  - Lethargy [Unknown]

NARRATIVE: CASE EVENT DATE: 20211001
